FAERS Safety Report 26053561 (Version 1)
Quarter: 2025Q4

REPORT INFORMATION
  Report Type: Spontaneous
  Country: US (occurrence: None)
  Receive Date: 20251117
  Receipt Date: 20251117
  Transmission Date: 20260118
  Serious: No
  Sender: FDA-CTU
  Company Number: None

PATIENT
  Age: 44 Year
  Sex: Female

DRUGS (9)
  1. XOLAIR [Suspect]
     Active Substance: OMALIZUMAB
     Indication: Chronic spontaneous urticaria
     Dosage: FREQUENCY : MONTHLY;?
     Route: 058
     Dates: start: 20251023, end: 20251025
  2. BENADRYL [Concomitant]
     Active Substance: DIPHENHYDRAMINE HYDROCHLORIDE
  3. CLARITIN [Concomitant]
     Active Substance: LORATADINE
  4. IBUPROFEN [Concomitant]
     Active Substance: IBUPROFEN
  5. ZOLPIDEM [Concomitant]
     Active Substance: ZOLPIDEM TARTRATE
  6. VALTREX [Concomitant]
     Active Substance: VALACYCLOVIR HYDROCHLORIDE
  7. TACROLIMUS [Concomitant]
     Active Substance: TACROLIMUS
  8. TRAMICINALONE CREAM [Concomitant]
  9. TYLENON EXTRA STRENGTH [Concomitant]

REACTIONS (2)
  - Angioedema [None]
  - Therapy change [None]

NARRATIVE: CASE EVENT DATE: 20251023
